FAERS Safety Report 4845297-9 (Version None)
Quarter: 2005Q4

REPORT INFORMATION
  Report Type: 
  Country: None (occurrence: None)
  Receive Date: 20051205
  Receipt Date: 20051130
  Transmission Date: 20060501
  Serious: Yes (Hospitalization)
  Sender: FDA-Public Use
  Company Number: US-GLAXOSMITHKLINE-A0584083A

PATIENT
  Age: 37 Year
  Sex: Male

DRUGS (2)
  1. LITHIUM CARBONATE [Suspect]
     Route: 048
     Dates: start: 20050101, end: 20051101
  2. LAMICTAL [Suspect]
     Indication: BIPOLAR DISORDER
     Route: 048
     Dates: start: 20051128

REACTIONS (4)
  - DIPLOPIA [None]
  - DRUG INEFFECTIVE [None]
  - INSOMNIA [None]
  - VISION BLURRED [None]
